FAERS Safety Report 7073143-4 (Version None)
Quarter: 2010Q4

REPORT INFORMATION
  Report Type: 
  Country: None (occurrence: None)
  Receive Date: 20101029
  Receipt Date: 20100615
  Transmission Date: 20110411
  Serious: No
  Sender: FDA-Public Use
  Company Number: A0857509A

PATIENT
  Age: 76 Year
  Sex: Female

DRUGS (9)
  1. ADVAIR DISKUS 100/50 [Suspect]
     Indication: CHRONIC OBSTRUCTIVE PULMONARY DISEASE
     Dosage: 1PUFF TWICE PER DAY
     Route: 055
     Dates: start: 20080101
  2. OXYGEN [Concomitant]
  3. NEXIUM [Concomitant]
  4. RANITIDINE [Concomitant]
  5. GABAPENTIN [Concomitant]
  6. ACETABS [Concomitant]
  7. LORAZEPAM [Concomitant]
  8. NEBULIZER [Concomitant]
  9. VENTOLIN HFA [Concomitant]

REACTIONS (5)
  - ASTHENIA [None]
  - DRUG INEFFECTIVE [None]
  - DYSPNOEA [None]
  - DYSPNOEA EXERTIONAL [None]
  - PRODUCT QUALITY ISSUE [None]
